FAERS Safety Report 8191764-2 (Version None)
Quarter: 2012Q1

REPORT INFORMATION
  Report Type: 
  Country: None (occurrence: None)
  Receive Date: 20120307
  Receipt Date: 20120224
  Transmission Date: 20120608
  Serious: Yes (Life-Threatening, Other)
  Sender: FDA-Public Use
  Company Number: CA-BAYER-2012-022032

PATIENT
  Age: 59 Year
  Sex: Female

DRUGS (1)
  1. TRASYLOL [Suspect]
     Indication: CORONARY ARTERY BYPASS
     Dosage: UNK
     Dates: start: 20041115, end: 20041115

REACTIONS (4)
  - ARTERIAL HAEMORRHAGE [None]
  - MEDIASTINAL HAEMORRHAGE [None]
  - PULMONARY THROMBOSIS [None]
  - HAEMORRHAGE [None]
